FAERS Safety Report 8514632-2 (Version None)
Quarter: 2012Q3

REPORT INFORMATION
  Report Type: 
  Country: None (occurrence: None)
  Receive Date: 20120717
  Receipt Date: 20120705
  Transmission Date: 20120928
  Serious: No
  Sender: FDA-Public Use
  Company Number: US-ASTRAZENECA-2010SE56790

PATIENT
  Age: 58 Year
  Sex: Female
  Weight: 76.2 kg

DRUGS (16)
  1. SEROQUEL [Suspect]
     Route: 048
  2. SEROQUEL [Suspect]
     Route: 048
     Dates: start: 20101101
  3. SEROQUEL [Suspect]
     Route: 048
  4. SEROQUEL [Suspect]
     Route: 048
  5. XANAX [Concomitant]
  6. SEROQUEL [Suspect]
     Route: 048
  7. SEROQUEL [Suspect]
     Route: 048
     Dates: start: 20100601, end: 20101101
  8. SEROQUEL [Suspect]
     Route: 048
     Dates: start: 20100601, end: 20101101
  9. SEROQUEL [Suspect]
     Route: 048
  10. SEROQUEL [Suspect]
     Indication: SLEEP DISORDER
     Route: 048
     Dates: start: 20060101, end: 20100601
  11. SEROQUEL [Suspect]
     Route: 048
     Dates: start: 20100601, end: 20101101
  12. SEROQUEL [Suspect]
     Route: 048
     Dates: start: 20100601, end: 20101101
  13. SEROQUEL [Suspect]
     Route: 048
  14. SEROQUEL [Suspect]
     Indication: BIPOLAR DISORDER
     Route: 048
     Dates: start: 20060101, end: 20100601
  15. SEROQUEL [Suspect]
     Route: 048
     Dates: start: 20101101
  16. GENERIC TRILEPTAL [Concomitant]
     Indication: BIPOLAR DISORDER

REACTIONS (7)
  - VOMITING [None]
  - INTENTIONAL DRUG MISUSE [None]
  - DRUG DOSE OMISSION [None]
  - DRUG INEFFECTIVE [None]
  - HEADACHE [None]
  - HANGOVER [None]
  - SOMNOLENCE [None]
